FAERS Safety Report 5947744-8 (Version None)
Quarter: 2008Q4

REPORT INFORMATION
  Report Type: 
  Country: None (occurrence: None)
  Receive Date: 20081110
  Receipt Date: 20081110
  Transmission Date: 20090506
  Serious: Yes (Disabling, Other)
  Sender: FDA-Public Use
  Company Number: None

PATIENT
  Age: 21 Year
  Sex: Female
  Weight: 113.3993 kg

DRUGS (1)
  1. MIRENA [Suspect]
     Indication: CONTRACEPTION
     Dates: start: 20060519, end: 20081106

REACTIONS (9)
  - FEAR [None]
  - FORMICATION [None]
  - LEGAL PROBLEM [None]
  - MOOD SWINGS [None]
  - SCAR [None]
  - VAGINAL DISCHARGE [None]
  - VAGINAL DISORDER [None]
  - VAGINAL ODOUR [None]
  - VULVOVAGINAL PRURITUS [None]
